FAERS Safety Report 24462876 (Version 1)
Quarter: 2024Q4

REPORT INFORMATION
  Report Type: Spontaneous
  Country: US (occurrence: US)
  Receive Date: 20241018
  Receipt Date: 20241018
  Transmission Date: 20250114
  Serious: Yes (Other)
  Sender: NOVARTIS
  Company Number: US-002147023-NVSC2024US202628

PATIENT
  Sex: Male

DRUGS (1)
  1. KYMRIAH [Suspect]
     Active Substance: TISAGENLECLEUCEL
     Indication: Acute lymphocytic leukaemia
     Dosage: UNK, ONCE/SINGLE (1.6E8 CAR POS T-CELLS)
     Route: 042
     Dates: start: 20240809, end: 20240809

REACTIONS (1)
  - Acute lymphocytic leukaemia recurrent [Unknown]
